FAERS Safety Report 23259717 (Version 1)
Quarter: 2023Q4

REPORT INFORMATION
  Report Type: Spontaneous
  Country: US (occurrence: None)
  Receive Date: 20231204
  Receipt Date: 20231204
  Transmission Date: 20240110
  Serious: Yes (Hospitalization)
  Sender: FDA-Public Use
  Company Number: None

PATIENT
  Age: 65 Year
  Sex: Male

DRUGS (1)
  1. PHENTERMINE HYDROCHLORIDE\TOPIRAMATE [Suspect]
     Active Substance: PHENTERMINE HYDROCHLORIDE\TOPIRAMATE
     Dosage: FREQUENCY : DAILY;?
     Route: 048
     Dates: start: 20231103, end: 20231106

REACTIONS (6)
  - Insomnia [None]
  - Dizziness [None]
  - Dizziness [None]
  - Suicidal ideation [None]
  - Vomiting [None]
  - Sacral pain [None]

NARRATIVE: CASE EVENT DATE: 20231105
